FAERS Safety Report 8050154-3 (Version None)
Quarter: 2012Q1

REPORT INFORMATION
  Report Type: 
  Country: None (occurrence: None)
  Receive Date: 20120117
  Receipt Date: 20120110
  Transmission Date: 20120608
  Serious: Yes (Life-Threatening, Other)
  Sender: FDA-Public Use
  Company Number: JP-MERCK-1201USA01498

PATIENT

DRUGS (1)
  1. PERIACTIN [Suspect]
     Dosage: THE PATIENT WAS SUSPECTED TO HAVE 40 TABLETS
     Route: 048
     Dates: start: 20120105

REACTIONS (2)
  - OVERDOSE [None]
  - COMA [None]
